FAERS Safety Report 13691746 (Version 2)
Quarter: 2017Q3

REPORT INFORMATION
  Report Type: Spontaneous
  Country: IT (occurrence: IT)
  Receive Date: 20170626
  Receipt Date: 20170706
  Transmission Date: 20171127
  Serious: Yes (Hospitalization)
  Sender: FDA-Public Use
  Company Number: IT-TEVA-780044ACC

PATIENT
  Sex: Male
  Weight: 88 kg

DRUGS (1)
  1. PIOGLITAZONE. [Suspect]
     Active Substance: PIOGLITAZONE
     Indication: TYPE 2 DIABETES MELLITUS
     Dosage: 30 MILLIGRAM DAILY;
     Dates: start: 20120209, end: 20170130

REACTIONS (2)
  - Haematuria [Recovered/Resolved with Sequelae]
  - Transitional cell carcinoma [Recovered/Resolved with Sequelae]
